FAERS Safety Report 20209113 (Version 4)
Quarter: 2022Q1

REPORT INFORMATION
  Report Type: Report from Study
  Country: US (occurrence: US)
  Receive Date: 20211220
  Receipt Date: 20220204
  Transmission Date: 20220424
  Serious: Yes (Hospitalization, Other)
  Sender: FDA-Public Use
  Company Number: US-MALLINCKRODT-T202005529

PATIENT
  Sex: Male
  Weight: 130 kg

DRUGS (3)
  1. CORTICOTROPIN [Suspect]
     Active Substance: CORTICOTROPIN
     Indication: Sarcoidosis
     Dosage: 80 UNITS, EVERY TWO WEEKS
     Route: 058
     Dates: start: 2015
  2. CORTICOTROPIN [Suspect]
     Active Substance: CORTICOTROPIN
     Dosage: 80 UNITS, EVERY TWO WEEKS
     Route: 058
     Dates: start: 20210806
  3. LISINOPRIL [Suspect]
     Active Substance: LISINOPRIL
     Indication: Product used for unknown indication
     Dosage: UNK
     Route: 065

REACTIONS (38)
  - Cardiac disorder [Unknown]
  - Stent placement [Unknown]
  - Nephrolithiasis [Unknown]
  - Renal stone removal [Unknown]
  - Diabetes mellitus [Not Recovered/Not Resolved]
  - COVID-19 [Unknown]
  - Dementia [Not Recovered/Not Resolved]
  - Cardiac failure congestive [Unknown]
  - Sepsis [Unknown]
  - Confusional state [Unknown]
  - Abdominal pain [Unknown]
  - Dysuria [Unknown]
  - Hypophagia [Unknown]
  - Irritable bowel syndrome [Unknown]
  - Food intolerance [Unknown]
  - Weight decreased [Unknown]
  - Lactose intolerance [Unknown]
  - Bladder disorder [Unknown]
  - Prostatic disorder [Unknown]
  - Chronic obstructive pulmonary disease [Unknown]
  - Asthma [Unknown]
  - Dyspnoea [Not Recovered/Not Resolved]
  - Illness [Unknown]
  - Stress [Unknown]
  - Emphysema [Not Recovered/Not Resolved]
  - Spinal osteoarthritis [Not Recovered/Not Resolved]
  - Osteoarthritis [Not Recovered/Not Resolved]
  - Fibromyalgia [Not Recovered/Not Resolved]
  - Gait disturbance [Not Recovered/Not Resolved]
  - Eczema [Not Recovered/Not Resolved]
  - Hypoaesthesia [Unknown]
  - Pain [Not Recovered/Not Resolved]
  - Anger [Unknown]
  - Constipation [Unknown]
  - Diarrhoea [Unknown]
  - Injection site haemorrhage [Not Recovered/Not Resolved]
  - Abdominal distension [Not Recovered/Not Resolved]
  - Bronchitis [Not Recovered/Not Resolved]

NARRATIVE: CASE EVENT DATE: 20150101
